FAERS Safety Report 7545371-2 (Version None)
Quarter: 2011Q2

REPORT INFORMATION
  Report Type: 
  Country: None (occurrence: None)
  Receive Date: 20110613
  Receipt Date: 20110613
  Transmission Date: 20111010
  Serious: Yes (Hospitalization, Disabling)
  Sender: FDA-Public Use
  Company Number: None

PATIENT
  Age: 49 Year
  Sex: Female
  Weight: 74.8435 kg

DRUGS (1)
  1. CEFUROXIME AXETIL [Suspect]
     Indication: EAR INFECTION
     Dosage: ONE 2X PO
     Route: 048
     Dates: start: 20100219, end: 20100228

REACTIONS (1)
  - DEAFNESS BILATERAL [None]
